FAERS Safety Report 6667292-X (Version None)
Quarter: 2010Q2

REPORT INFORMATION
  Report Type: 
  Country: None (occurrence: None)
  Receive Date: 20100401
  Receipt Date: 20100325
  Transmission Date: 20101027
  Serious: Yes (Hospitalization)
  Sender: FDA-Public Use
  Company Number: 1000012719

PATIENT

DRUGS (3)
  1. BYSTOLIC [Suspect]
     Dosage: 40 MG (1 IN 1 D), ORAL
     Route: 048
  2. BENICAR [Suspect]
     Dosage: 40 MG (1 IN 1 D), ORAL
  3. PROCARDIA [Suspect]
     Dosage: 60 MG (1 IN 1 D), ORAL
     Route: 048

REACTIONS (3)
  - BLOOD PRESSURE INADEQUATELY CONTROLLED [None]
  - NO THERAPEUTIC RESPONSE [None]
  - PNEUMONIA [None]
